FAERS Safety Report 4372295-4 (Version None)
Quarter: 2004Q2

REPORT INFORMATION
  Report Type: 
  Country: None (occurrence: None)
  Receive Date: 20040602
  Receipt Date: 20040517
  Transmission Date: 20050107
  Serious: Yes (Hospitalization)
  Sender: FDA-Public Use
  Company Number: 2004AP02335

PATIENT
  Age: 69 Year
  Sex: Male
  Weight: 49 kg

DRUGS (10)
  1. SEROQUEL [Suspect]
     Indication: SCHIZOPHRENIA
     Dosage: 100 MG TID PO
     Route: 048
     Dates: end: 20040420
  2. SEROQUEL [Suspect]
     Indication: SCHIZOPHRENIA
     Dosage: 100 MG DAILY PO
     Route: 048
     Dates: start: 20040421
  3. LODOPIN [Suspect]
     Indication: SCHIZOPHRENIA
     Dosage: 100 MG TID PO
     Route: 048
     Dates: end: 20040420
  4. LODOPIN [Suspect]
     Indication: SCHIZOPHRENIA
     Dosage: 100 MG DAILY PO
     Route: 048
     Dates: start: 20040421
  5. RISPERDAL [Suspect]
     Indication: SCHIZOPHRENIA
     Dosage: 1 MG TID PO
     Route: 048
     Dates: end: 20040420
  6. RISPERDAL [Suspect]
     Indication: SCHIZOPHRENIA
     Dosage: 1 MG DAILY PO
     Route: 048
     Dates: start: 20040421
  7. TASMOLIN [Suspect]
     Indication: SCHIZOPHRENIA
     Dosage: 3 MG DAILY PO
     Route: 048
     Dates: end: 20040420
  8. TASMOLIN [Suspect]
     Indication: SCHIZOPHRENIA
     Dosage: 1 MG DAILY PO
     Route: 048
     Dates: start: 20040421
  9. ROHYPNOL [Suspect]
  10. VEGETAMIN [Suspect]

REACTIONS (6)
  - ALANINE AMINOTRANSFERASE INCREASED [None]
  - ASPARTATE AMINOTRANSFERASE INCREASED [None]
  - BLOOD ALKALINE PHOSPHATASE INCREASED [None]
  - BLOOD LACTATE DEHYDROGENASE INCREASED [None]
  - HEPATIC FUNCTION ABNORMAL [None]
  - WEIGHT DECREASED [None]
